FAERS Safety Report 17078253 (Version 3)
Quarter: 2019Q4

REPORT INFORMATION
  Report Type: Spontaneous
  Country: CA (occurrence: US)
  Receive Date: 20191126
  Receipt Date: 20191218
  Transmission Date: 20200122
  Serious: Yes (Hospitalization, Disabling, Other)
  Sender: FDA-Public Use
  Company Number: CA-GILEAD-2019-0439609

PATIENT
  Age: 56 Year
  Sex: Male
  Weight: 94 kg

DRUGS (2)
  1. POLATUZUMAB VEDOTIN. [Concomitant]
     Active Substance: POLATUZUMAB VEDOTIN
  2. YESCARTA [Suspect]
     Active Substance: AXICABTAGENE CILOLEUCEL
     Indication: PRODUCT USED FOR UNKNOWN INDICATION
     Dosage: UNK
     Route: 042
     Dates: start: 201909, end: 201909

REACTIONS (5)
  - Blood immunoglobulin G decreased [Not Recovered/Not Resolved]
  - Therapeutic response decreased [Unknown]
  - Cytokine release syndrome [Unknown]
  - Headache [Recovered/Resolved]
  - Hypotension [Recovered/Resolved]

NARRATIVE: CASE EVENT DATE: 20190822
